FAERS Safety Report 6594005-2 (Version None)
Quarter: 2010Q1

REPORT INFORMATION
  Report Type: 
  Country: None (occurrence: None)
  Receive Date: 20100212
  Receipt Date: 20100201
  Transmission Date: 20100710
  Serious: Yes (Other)
  Sender: FDA-Public Use
  Company Number: ADE10005-L

PATIENT

DRUGS (2)
  1. CALCIPOTRIENE AND BETAMETHASONE DIPROPIONATE [Suspect]
     Indication: PSORIASIS
     Dosage: 100G/WK, 1X DAY, TOPICAL;X1MONTH THEN AS NEEDED
     Route: 061
  2. ADALIMUMAB 40 MG INJECTION [Concomitant]

REACTIONS (1)
  - JOINT SWELLING [None]
